FAERS Safety Report 7007881-6 (Version None)
Quarter: 2010Q3

REPORT INFORMATION
  Report Type: 
  Country: None (occurrence: None)
  Receive Date: 20100922
  Receipt Date: 20100915
  Transmission Date: 20110219
  Serious: Yes (Life-Threatening, Disabling, Other)
  Sender: FDA-Public Use
  Company Number: US-BAYER-201033835NA

PATIENT
  Sex: Female

DRUGS (1)
  1. AVELOX [Suspect]
     Indication: SINUSITIS
     Dosage: TOTAL DAILY DOSE: 400 MG  UNIT DOSE: 400 MG
     Route: 048

REACTIONS (7)
  - ABDOMINAL PAIN UPPER [None]
  - DIARRHOEA [None]
  - DYSPNOEA [None]
  - HYPERSENSITIVITY [None]
  - SWELLING [None]
  - URTICARIA [None]
  - VOMITING [None]
